FAERS Safety Report 18513712 (Version 1)
Quarter: 2020Q4

REPORT INFORMATION
  Report Type: Spontaneous
  Country: US (occurrence: US)
  Receive Date: 20201117
  Receipt Date: 20201117
  Transmission Date: 20210114
  Serious: No
  Sender: FDA-Public Use
  Company Number: US-NALPROPION PHARMACEUTICALS INC.-2019-008558

PATIENT
  Sex: Female

DRUGS (5)
  1. CONTRAVE [Suspect]
     Active Substance: BUPROPION HYDROCHLORIDE\NALTREXONE HYDROCHLORIDE
     Dosage: ONE TABLET IN THE MORNING, ONE TABLET EVENING
     Route: 048
     Dates: start: 201908, end: 201908
  2. CONTRAVE [Suspect]
     Active Substance: BUPROPION HYDROCHLORIDE\NALTREXONE HYDROCHLORIDE
     Dosage: ONE TABLET IN THE MORNING, ONE TABLET EVENING
     Route: 048
     Dates: start: 20190816, end: 201908
  3. CONTRAVE [Suspect]
     Active Substance: BUPROPION HYDROCHLORIDE\NALTREXONE HYDROCHLORIDE
     Dosage: ONE TABLET DAILY
     Route: 048
     Dates: start: 201908, end: 20190901
  4. CONTRAVE [Suspect]
     Active Substance: BUPROPION HYDROCHLORIDE\NALTREXONE HYDROCHLORIDE
     Indication: PRODUCT USED FOR UNKNOWN INDICATION
     Dosage: STARTED 10-AUG-2019 OR 11-AUG-2019, ONE TABLE IN THE MORNING
     Route: 048
     Dates: start: 201908, end: 201908
  5. CONTRAVE [Suspect]
     Active Substance: BUPROPION HYDROCHLORIDE\NALTREXONE HYDROCHLORIDE
     Dosage: ONE TABLET IN THE MORNING
     Route: 048
     Dates: start: 201908, end: 201908

REACTIONS (5)
  - Nausea [Unknown]
  - Illness [Unknown]
  - Dizziness [Unknown]
  - Impaired work ability [Unknown]
  - Vomiting [Unknown]

NARRATIVE: CASE EVENT DATE: 201908
